FAERS Safety Report 9168968 (Version 1)
Quarter: 2013Q1

REPORT INFORMATION
  Report Type: Spontaneous
  Country: DE (occurrence: DE)
  Receive Date: 20130318
  Receipt Date: 20130318
  Transmission Date: 20140127
  Serious: Yes (Hospitalization)
  Sender: FDA-Public Use
  Company Number: DE-ELI_LILLY_AND_COMPANY-DE201303003759

PATIENT
  Sex: Male

DRUGS (4)
  1. BYDUREON [Suspect]
     Indication: DIABETES MELLITUS
     Dosage: 2 MG, UNK
     Route: 058
     Dates: start: 20130205
  2. RAMIPRIL [Concomitant]
  3. PARACETAMOL [Concomitant]
  4. IBUPROFEN [Concomitant]

REACTIONS (6)
  - Blood pressure increased [Recovered/Resolved]
  - Cardiovascular disorder [Not Recovered/Not Resolved]
  - Nasopharyngitis [Not Recovered/Not Resolved]
  - Pyrexia [Not Recovered/Not Resolved]
  - Injection site pruritus [Not Recovered/Not Resolved]
  - Injection site nodule [Not Recovered/Not Resolved]
